FAERS Safety Report 9098025 (Version 1)
Quarter: 2013Q1

REPORT INFORMATION
  Report Type: Spontaneous
  Country: IT (occurrence: IT)
  Receive Date: 20130212
  Receipt Date: 20130212
  Transmission Date: 20140127
  Serious: Yes (Hospitalization)
  Sender: FDA-Public Use
  Company Number: IT-JNJFOC-20130200090

PATIENT
  Age: 11 Year
  Sex: Female

DRUGS (1)
  1. SERENASE [Suspect]
     Indication: PRODUCT USED FOR UNKNOWN INDICATION
     Route: 048
     Dates: start: 20130118, end: 20130120

REACTIONS (4)
  - Drug abuse [Unknown]
  - Pallor [Recovered/Resolved]
  - Retching [Recovered/Resolved]
  - Tremor [Recovered/Resolved]
